FAERS Safety Report 6199275-0 (Version None)
Quarter: 2009Q2

REPORT INFORMATION
  Report Type: 
  Country: None (occurrence: None)
  Receive Date: 20090522
  Receipt Date: 20090515
  Transmission Date: 20091009
  Serious: Yes (Other)
  Sender: FDA-Public Use
  Company Number: PHHY2009JP17726

PATIENT
  Age: 19 Year
  Sex: Male

DRUGS (7)
  1. NEORAL [Suspect]
     Indication: NEPHROTIC SYNDROME
     Dosage: UNK
     Route: 048
  2. ENDOXAN [Suspect]
     Indication: NEPHROTIC SYNDROME
  3. METHYLPREDNISOLONE [Suspect]
     Indication: NEPHROTIC SYNDROME
  4. STEROIDS NOS [Concomitant]
  5. ALBUMIN NOS [Concomitant]
  6. DIURETICS [Concomitant]
  7. ANGIOTENSIN CONVERTING ENZYME BLOCKERS [Concomitant]

REACTIONS (3)
  - BODY HEIGHT BELOW NORMAL [None]
  - GROWTH HORMONE DEFICIENCY [None]
  - GROWTH RETARDATION [None]
